FAERS Safety Report 9343930 (Version 1)
Quarter: 2013Q2

REPORT INFORMATION
  Report Type: Spontaneous
  Country: GR (occurrence: GR)
  Receive Date: 20130612
  Receipt Date: 20130612
  Transmission Date: 20140414
  Serious: Yes (Other)
  Sender: FDA-Public Use
  Company Number: GR-UCBSA-001742

PATIENT
  Age: 6 Year
  Sex: Male
  Weight: 19.5 kg

DRUGS (5)
  1. VIMPAT [Suspect]
     Indication: EPILEPSY
     Route: 048
     Dates: start: 20090327, end: 20090921
  2. VIMPAT [Suspect]
     Indication: EPILEPSY
     Dosage: INCREASE AT THE RATE OF 1MG/KG PER WEEK
  3. VIMPAT [Suspect]
     Indication: EPILEPSY
  4. KEPPRA [Concomitant]
     Indication: EPILEPSY
     Route: 048
  5. DEPAKINE [Concomitant]
     Indication: EPILEPSY
     Route: 048

REACTIONS (1)
  - Pancytopenia [Recovered/Resolved]
